FAERS Safety Report 8194324-2 (Version None)
Quarter: 2012Q1

REPORT INFORMATION
  Report Type: 
  Country: None (occurrence: None)
  Receive Date: 20120308
  Receipt Date: 20120307
  Transmission Date: 20120608
  Serious: No
  Sender: FDA-Public Use
  Company Number: US-PFIZER INC-2011316974

PATIENT
  Sex: Male
  Weight: 81.633 kg

DRUGS (11)
  1. DIPYRIDAMOLE [Concomitant]
     Indication: ANTIPLATELET THERAPY
     Dosage: UNK
  2. COENZYME Q10 [Concomitant]
     Indication: CARDIAC DISORDER
     Dosage: UNK
  3. LIPITOR [Suspect]
     Indication: BLOOD CHOLESTEROL INCREASED
     Dosage: UNK
     Route: 048
  4. VITEYES [Concomitant]
     Indication: MACULAR DEGENERATION
     Dosage: UNK
  5. LIPITOR [Suspect]
     Dosage: 10 MG, UNK
     Route: 048
     Dates: start: 20110601
  6. LOSARTAN [Concomitant]
     Indication: HYPERTENSION
     Dosage: UNK
  7. FISH OIL [Concomitant]
     Indication: ANTIPLATELET THERAPY
     Dosage: UNK
  8. ZETIA [Concomitant]
     Indication: BLOOD CHOLESTEROL INCREASED
     Dosage: UNK
  9. LABETALOL [Concomitant]
     Indication: HYPERTENSION
     Dosage: UNK
  10. MAGNESIUM OXIDE [Concomitant]
     Indication: MINERAL SUPPLEMENTATION
     Dosage: UNK
  11. ASPIRIN [Concomitant]
     Indication: ANTIPLATELET THERAPY
     Dosage: 81 MG, UNK

REACTIONS (6)
  - INTRANASAL PARAESTHESIA [None]
  - GLOSSODYNIA [None]
  - BURNING SENSATION [None]
  - PARAESTHESIA ORAL [None]
  - NASAL DISCOMFORT [None]
  - PRURITUS GENERALISED [None]
